FAERS Safety Report 4970394-7 (Version None)
Quarter: 2006Q2

REPORT INFORMATION
  Report Type: 
  Country: None (occurrence: None)
  Receive Date: 20060412
  Receipt Date: 20050121
  Transmission Date: 20061013
  Serious: Yes (Other)
  Sender: FDA-Public Use
  Company Number: GB-GLAXOSMITHKLINE-B0365278A

PATIENT
  Age: 29 Year
  Sex: Female
  Weight: 64 kg

DRUGS (2)
  1. ZYBAN [Suspect]
     Dosage: 150MG PER DAY
     Route: 048
     Dates: start: 20050117, end: 20050121
  2. CO-DYDRAMOL [Concomitant]
     Dates: start: 20050112

REACTIONS (2)
  - DYSTONIA [None]
  - MUSCLE SPASMS [None]
